FAERS Safety Report 20164303 (Version 1)
Quarter: 2021Q4

REPORT INFORMATION
  Report Type: Spontaneous
  Country: US (occurrence: US)
  Receive Date: 20211209
  Receipt Date: 20211209
  Transmission Date: 20220303
  Serious: Yes (Other)
  Sender: FDA-Public Use
  Company Number: US-CADILA HEALTHCARE LIMITED-US-ZYDUS-072209

PATIENT

DRUGS (2)
  1. TRIENTINE [Suspect]
     Active Substance: TRIENTINE
     Indication: Hepato-lenticular degeneration
     Dosage: UNK
     Route: 065
  2. ZINC ACETATE [Concomitant]
     Active Substance: ZINC ACETATE
     Indication: Hepato-lenticular degeneration
     Dosage: UNK

REACTIONS (2)
  - Cognitive disorder [Recovering/Resolving]
  - Condition aggravated [Recovering/Resolving]
